FAERS Safety Report 8287502-5 (Version None)
Quarter: 2012Q2

REPORT INFORMATION
  Report Type: 
  Country: None (occurrence: None)
  Receive Date: 20120410
  Receipt Date: 20120410
  Transmission Date: 20120825
  Serious: Yes (Life-Threatening, Hospitalization, Disabling)
  Sender: FDA-Public Use
  Company Number: None

PATIENT
  Age: 57 Year
  Sex: Male
  Weight: 83.9154 kg

DRUGS (1)
  1. TEMODAR [Suspect]
     Indication: CHEMOTHERAPY
     Dosage: 1X INTERARTERIAL
     Route: 013
     Dates: start: 20111208

REACTIONS (1)
  - BRAIN STEM STROKE [None]
